FAERS Safety Report 14189059 (Version 1)
Quarter: 2017Q4

REPORT INFORMATION
  Report Type: Spontaneous
  Country: US (occurrence: US)
  Receive Date: 20171115
  Receipt Date: 20171115
  Transmission Date: 20180321
  Serious: Yes (Hospitalization)
  Sender: FDA-Public Use
  Company Number: US-B.I. PHARMACEUTICALS,INC./RIDGEFIELD-2017-BI-060656

PATIENT
  Sex: Male

DRUGS (1)
  1. TRADJENTA [Suspect]
     Active Substance: LINAGLIPTIN
     Indication: DIABETES MELLITUS
     Route: 065
     Dates: start: 2015

REACTIONS (5)
  - Gastric neoplasm [Unknown]
  - Abdominal distension [Unknown]
  - Intestinal obstruction [Unknown]
  - Diarrhoea [Unknown]
  - Flatulence [Unknown]

NARRATIVE: CASE EVENT DATE: 2015
